FAERS Safety Report 22888452 (Version 6)
Quarter: 2023Q4

REPORT INFORMATION
  Report Type: Spontaneous
  Country: US (occurrence: US)
  Receive Date: 20230831
  Receipt Date: 20231220
  Transmission Date: 20240109
  Serious: No
  Sender: FDA-Public Use
  Company Number: US-OPELLA-2023OHG004570

PATIENT
  Age: 77 Year
  Sex: Female
  Weight: 45.81 kg

DRUGS (1)
  1. ASPERCREME MAX NO MESS ROLL ON [Suspect]
     Active Substance: MENTHOL
     Indication: Arthropod bite
     Dosage: 3 G/74 ML
     Route: 061
     Dates: start: 20230816, end: 20230818

REACTIONS (2)
  - Drug ineffective [Unknown]
  - No adverse event [Unknown]
